FAERS Safety Report 8499256-8 (Version None)
Quarter: 2012Q2

REPORT INFORMATION
  Report Type: 
  Country: None (occurrence: None)
  Receive Date: 20120612
  Receipt Date: 20120529
  Transmission Date: 20120825
  Serious: Yes (Hospitalization, Other)
  Sender: FDA-Public Use
  Company Number: 2012PROUSA01163

PATIENT
  Age: 71 Year
  Sex: Male
  Weight: 83.4 kg

DRUGS (5)
  1. VITAMIN D /00107901/ (ERGOCALCIFEROL) TABLET [Concomitant]
  2. METFFORMIN HYDROCHLORIDE [Concomitant]
  3. ZOLADEX /00732101/ (GOSERELIN) IMPLANTATION [Concomitant]
  4. CALCIUM CARBONATE (CALCIUM CARBONATE) TABLET [Concomitant]
  5. PROVENGE [Suspect]
     Indication: PROSTATE CANCER METASTATIC
     Dosage: 250 ML, SINGLE, INTRAVENOUS
     Route: 042
     Dates: start: 20120224, end: 20120224

REACTIONS (12)
  - NAUSEA [None]
  - PLATELET COUNT INCREASED [None]
  - HAEMATURIA [None]
  - FATIGUE [None]
  - BLOOD GLUCOSE INCREASED [None]
  - JUGULAR VEIN THROMBOSIS [None]
  - STAPHYLOCOCCAL BACTERAEMIA [None]
  - FAECAL INCONTINENCE [None]
  - DEVICE RELATED INFECTION [None]
  - DIZZINESS [None]
  - ASTHENIA [None]
  - MUSCULOSKELETAL DISCOMFORT [None]
